FAERS Safety Report 5900689-1 (Version None)
Quarter: 2008Q3

REPORT INFORMATION
  Report Type: 
  Country: None (occurrence: None)
  Receive Date: 20080926
  Receipt Date: 20080920
  Transmission Date: 20090109
  Serious: Yes (Other)
  Sender: FDA-Public Use
  Company Number: US-PFIZER INC-2008079441

PATIENT
  Sex: Male
  Weight: 77.272 kg

DRUGS (1)
  1. VIAGRA [Suspect]
     Indication: ERECTILE DYSFUNCTION
     Dosage: DAILY DOSE:50MG

REACTIONS (3)
  - DRUG INEFFECTIVE [None]
  - HAEMATOSPERMIA [None]
  - PENIS DISORDER [None]
